FAERS Safety Report 8064506-9 (Version None)
Quarter: 2012Q1

REPORT INFORMATION
  Report Type: 
  Country: None (occurrence: None)
  Receive Date: 20120123
  Receipt Date: 20120118
  Transmission Date: 20120608
  Serious: Yes (Other)
  Sender: FDA-Public Use
  Company Number: FR-ABBOTT-11P-056-0882838-00

PATIENT
  Sex: Female
  Weight: 97 kg

DRUGS (3)
  1. EPIVIR [Concomitant]
     Indication: HIV INFECTION
     Route: 048
     Dates: start: 20051201
  2. KALETRA [Suspect]
     Indication: HIV INFECTION
     Dosage: 2 TABS DAILY (1/2 OF REGIMEN POSOLOGY)
     Route: 048
     Dates: start: 20030101, end: 20111222
  3. ZIAGEN [Concomitant]
     Indication: HIV INFECTION
     Dates: start: 20051201

REACTIONS (1)
  - OPTIC NEURITIS [None]
